FAERS Safety Report 6337143-1 (Version None)
Quarter: 2009Q3

REPORT INFORMATION
  Report Type: 
  Country: None (occurrence: None)
  Receive Date: 20090831
  Receipt Date: 20090819
  Transmission Date: 20100115
  Serious: Yes (Death)
  Sender: FDA-Public Use
  Company Number: 2009-03350

PATIENT
  Age: 67 Year
  Sex: Male
  Weight: 60 kg

DRUGS (2)
  1. VELCADE [Suspect]
     Indication: MANTLE CELL LYMPHOMA
  2. RITUXIMAB(RITUXIMAB) INJECTION, 375MG/M2 [Suspect]
     Indication: MANTLE CELL LYMPHOMA

REACTIONS (4)
  - DIARRHOEA [None]
  - PULMONARY OEDEMA [None]
  - PYREXIA [None]
  - RESPIRATORY FAILURE [None]
